FAERS Safety Report 5446707-9 (Version None)
Quarter: 2007Q3

REPORT INFORMATION
  Report Type: 
  Country: None (occurrence: None)
  Receive Date: 20070907
  Receipt Date: 20070906
  Transmission Date: 20080115
  Serious: Yes (Hospitalization)
  Sender: FDA-Public Use
  Company Number: US-BOEHRINGER INGELHEIM PHARMACEUTICALS, INC.-2007-BP-19292PF

PATIENT
  Sex: Female

DRUGS (4)
  1. SPIRIVA [Suspect]
     Route: 055
     Dates: end: 20070805
  2. LIPITOR [Concomitant]
  3. CHANTIX [Concomitant]
  4. TRICOR [Concomitant]

REACTIONS (1)
  - URINARY RETENTION [None]
